FAERS Safety Report 13610418 (Version 1)
Quarter: 2017Q2

REPORT INFORMATION
  Report Type: Spontaneous
  Country: US (occurrence: US)
  Receive Date: 20170602
  Receipt Date: 20170602
  Transmission Date: 20170830
  Serious: No
  Sender: FDA-Public Use
  Company Number: None

PATIENT
  Sex: Female

DRUGS (1)
  1. GILENYA [Suspect]
     Active Substance: FINGOLIMOD HYDROCHLORIDE
     Indication: MULTIPLE SCLEROSIS
     Route: 048
     Dates: start: 20170220

REACTIONS (7)
  - Weight decreased [None]
  - Alopecia [None]
  - White blood cell count decreased [None]
  - Decreased appetite [None]
  - Myalgia [None]
  - Headache [None]
  - Arthralgia [None]
